FAERS Safety Report 22343746 (Version 1)
Quarter: 2023Q2

REPORT INFORMATION
  Report Type: Spontaneous
  Country: US (occurrence: None)
  Receive Date: 20230518
  Receipt Date: 20230518
  Transmission Date: 20230721
  Serious: Yes (Other)
  Sender: FDA-Public Use
  Company Number: None

PATIENT
  Sex: Male

DRUGS (3)
  1. ABIRATERONE [Suspect]
     Active Substance: ABIRATERONE
     Dosage: FREQUENCY : DAILY;?
     Route: 048
  2. FLECAINIDE [Concomitant]
     Active Substance: FLECAINIDE
  3. METOPROLOL [Concomitant]

REACTIONS (3)
  - Nausea [None]
  - Product use complaint [None]
  - Drug interaction [None]
